FAERS Safety Report 25144359 (Version 2)
Quarter: 2025Q3

REPORT INFORMATION
  Report Type: Report from Study
  Country: US (occurrence: US)
  Receive Date: 20250401
  Receipt Date: 20250924
  Transmission Date: 20251021
  Serious: No
  Sender: SUNOVION
  Company Number: US-SMPA-2025SPA002649AA

PATIENT
  Age: 88 Year
  Sex: Male

DRUGS (3)
  1. ORGOVYX [Suspect]
     Active Substance: RELUGOLIX
     Indication: Prostate cancer
     Route: 048
  2. ORGOVYX [Suspect]
     Active Substance: RELUGOLIX
     Dosage: 120 MG, QD
     Route: 048
  3. ELIQUIS [Concomitant]
     Active Substance: APIXABAN

REACTIONS (7)
  - Weight decreased [Unknown]
  - Fatigue [Unknown]
  - Weight increased [Unknown]
  - Headache [Unknown]
  - Diarrhoea [Unknown]
  - Hot flush [Unknown]
  - Constipation [Unknown]
